FAERS Safety Report 4480113-9 (Version None)
Quarter: 2004Q3

REPORT INFORMATION
  Report Type: 
  Country: None (occurrence: None)
  Receive Date: 20040923
  Receipt Date: 20040816
  Transmission Date: 20050211
  Serious: No
  Sender: FDA-Public Use
  Company Number: USA040669391

PATIENT
  Age: 61 Year
  Sex: Female
  Weight: 77 kg

DRUGS (10)
  1. FORTEO [Suspect]
     Indication: OSTEOPOROSIS
     Dosage: 20 UG/1 DAY
     Dates: start: 20031001, end: 20040605
  2. CALIUM PLUS D [Concomitant]
  3. CLARITIN [Concomitant]
  4. EVENING PRIMROSE OIL [Concomitant]
  5. BLACK COHOSH [Concomitant]
  6. FISH OIL [Concomitant]
  7. POTASSIUM [Concomitant]
  8. MAGNESIUM [Concomitant]
  9. VITAMIN B COMPLEX CAP [Concomitant]
  10. PULMICORT (BUDSONIDE) [Concomitant]

REACTIONS (5)
  - ARTHRALGIA [None]
  - CHEST WALL PAIN [None]
  - DYSSTASIA [None]
  - FALL [None]
  - RASH [None]
